FAERS Safety Report 9678054 (Version 1)
Quarter: 2013Q4

REPORT INFORMATION
  Report Type: Spontaneous
  Country: US (occurrence: None)
  Receive Date: 20131107
  Receipt Date: 20131107
  Transmission Date: 20140711
  Serious: Yes (Other)
  Sender: FDA-Public Use
  Company Number: None

PATIENT
  Age: 24 Year
  Sex: Female
  Weight: 58.97 kg

DRUGS (3)
  1. DEXTROAMPHETAMINE [Suspect]
     Indication: ATTENTION DEFICIT/HYPERACTIVITY DISORDER
     Dosage: 2CAPS QD ORAL
     Route: 048
     Dates: start: 20130815, end: 20131106
  2. DEXTROAMPHETAMINE [Suspect]
     Indication: GENERALISED ANXIETY DISORDER
     Dosage: 2CAPS QD ORAL
     Route: 048
     Dates: start: 20130815, end: 20131106
  3. DEXTREAMPHETAMINE [Concomitant]

REACTIONS (2)
  - Product substitution issue [None]
  - Disease recurrence [None]
